FAERS Safety Report 11009293 (Version 1)
Quarter: 2015Q2

REPORT INFORMATION
  Report Type: Spontaneous
  Country: US (occurrence: US)
  Receive Date: 20150410
  Receipt Date: 20150410
  Transmission Date: 20150821
  Serious: Yes (Other)
  Sender: FDA-Public Use
  Company Number: US-PFIZER INC-2015120894

PATIENT
  Age: 42 Year
  Sex: Male
  Weight: 146 kg

DRUGS (1)
  1. VIAGRA [Suspect]
     Active Substance: SILDENAFIL CITRATE
     Dosage: UNK

REACTIONS (7)
  - Blindness [Unknown]
  - Anal haemorrhage [Unknown]
  - Pollakiuria [Unknown]
  - Hyperhidrosis [Unknown]
  - Nausea [Unknown]
  - Erection increased [Not Recovered/Not Resolved]
  - Intentional product misuse [Unknown]

NARRATIVE: CASE EVENT DATE: 20150401
